FAERS Safety Report 8379952-3 (Version None)
Quarter: 2012Q2

REPORT INFORMATION
  Report Type: 
  Country: None (occurrence: None)
  Receive Date: 20120523
  Receipt Date: 20120514
  Transmission Date: 20120825
  Serious: Yes (Other)
  Sender: FDA-Public Use
  Company Number: US-SANOFI-AVENTIS-2012SA034518

PATIENT

DRUGS (4)
  1. DEXAMETHASONE [Concomitant]
     Indication: PREMEDICATION
  2. DOCETAXEL [Suspect]
     Dosage: ADMINISTERED OVER 1 HOUR ON DAY 1 OF THE 21 DAY CYCLE
     Route: 042
  3. ALL OTHER THERAPEUTIC PRODUCTS [Suspect]
     Dosage: INFUSION ADMINISTERED OVER 2 H ON DAY 1 OF EVERY 21 DAY CYCLE
     Route: 042
  4. DOCETAXEL [Suspect]
     Dosage: ADMINISTERED OVER 1 HOUR ON DAY 1 OF THE 21 DAY CYCLE
     Route: 042

REACTIONS (2)
  - NODAL ARRHYTHMIA [None]
  - ATRIOVENTRICULAR BLOCK COMPLETE [None]
